FAERS Safety Report 15627308 (Version 1)
Quarter: 2018Q4

REPORT INFORMATION
  Report Type: Other
  Country: US (occurrence: US)
  Receive Date: 20181116
  Receipt Date: 20181116
  Transmission Date: 20190205
  Serious: Yes (Hospitalization)
  Sender: FDA-Public Use
  Company Number: US-INTERCEPT-PMOCA2018001813

PATIENT

DRUGS (1)
  1. OCALIVA [Suspect]
     Active Substance: OBETICHOLIC ACID
     Indication: PRIMARY BILIARY CHOLANGITIS
     Dosage: 5 MG, QD
     Route: 048
     Dates: end: 20180924

REACTIONS (13)
  - Deep vein thrombosis [Unknown]
  - Haematemesis [Unknown]
  - Arthralgia [Unknown]
  - Rectal haemorrhage [Unknown]
  - Fatigue [Unknown]
  - Pruritus [Unknown]
  - Constipation [Unknown]
  - Peptic ulcer [Unknown]
  - Dizziness [Unknown]
  - Abdominal pain upper [Unknown]
  - Pulmonary embolism [Unknown]
  - Oropharyngeal pain [Unknown]
  - Peripheral swelling [Unknown]

NARRATIVE: CASE EVENT DATE: 20181015
